FAERS Safety Report 10580123 (Version 1)
Quarter: 2014Q4

REPORT INFORMATION
  Report Type: Spontaneous
  Country: FR (occurrence: FR)
  Receive Date: 20141112
  Receipt Date: 20141112
  Transmission Date: 20150529
  Serious: Yes (Death, Hospitalization)
  Sender: FDA-Public Use
  Company Number: FR-SA-2014SA154404

PATIENT
  Age: 77 Year
  Sex: Male

DRUGS (20)
  1. IXPRIM [Concomitant]
     Active Substance: ACETAMINOPHEN\TRAMADOL HYDROCHLORIDE
     Dates: end: 20120113
  2. UMULINE [Concomitant]
     Active Substance: INSULIN HUMAN
     Dates: end: 20120113
  3. GLYCEROL\PARAFFIN [Concomitant]
     Active Substance: GLYCERIN\PARAFFIN
     Dates: end: 20120113
  4. NIPENT [Suspect]
     Active Substance: PENTOSTATIN
     Indication: T-CELL PROLYMPHOCYTIC LEUKAEMIA
     Route: 042
     Dates: start: 20111128, end: 20111213
  5. ACUPAN [Concomitant]
     Active Substance: NEFOPAM HYDROCHLORIDE
     Dates: end: 20120113
  6. BACTRIM [Concomitant]
     Active Substance: SULFAMETHOXAZOLE\TRIMETHOPRIM
     Dates: end: 20120113
  7. ZYLORIC [Concomitant]
     Active Substance: ALLOPURINOL
     Dates: end: 20120113
  8. HYDROCORTISONE. [Concomitant]
     Active Substance: HYDROCORTISONE
     Dates: end: 20120113
  9. IMOVANE [Concomitant]
     Active Substance: ZOPICLONE
     Dates: end: 20120113
  10. DERMOVAL [Concomitant]
     Active Substance: CLOBETASOL
     Dates: end: 20120113
  11. LASILIX [Concomitant]
     Active Substance: FUROSEMIDE
     Dates: end: 20120113
  12. RED BLOOD CELLS [Concomitant]
     Active Substance: HUMAN RED BLOOD CELL
     Dates: end: 20120113
  13. PLATELET [Concomitant]
     Dates: end: 20120113
  14. CORTANCYL [Concomitant]
     Active Substance: PREDNISONE
     Dates: end: 20111228
  15. MABCAMPATH [Suspect]
     Active Substance: ALEMTUZUMAB
     Indication: T-CELL PROLYMPHOCYTIC LEUKAEMIA
     Route: 042
     Dates: start: 20110706, end: 20111122
  16. PANTOPRAZOLE [Concomitant]
     Active Substance: PANTOPRAZOLE SODIUM
     Dates: end: 20120113
  17. CYANOCOBALAMIN. [Concomitant]
     Active Substance: CYANOCOBALAMIN
     Dates: end: 20120113
  18. LEDERFOLINE [Concomitant]
     Active Substance: LEUCOVORIN CALCIUM
     Dates: end: 20120113
  19. ZELITREX [Concomitant]
     Active Substance: VALACYCLOVIR HYDROCHLORIDE
     Dates: end: 20120113
  20. CALCIUM CARBONATE/COLECALCIFEROL [Concomitant]
     Active Substance: CALCIUM CARBONATE\CHOLECALCIFEROL
     Dates: end: 20120113

REACTIONS (2)
  - Thrombotic microangiopathy [Fatal]
  - Acute kidney injury [Fatal]

NARRATIVE: CASE EVENT DATE: 20111227
